FAERS Safety Report 15566292 (Version 2)
Quarter: 2019Q1

REPORT INFORMATION
  Report Type: Spontaneous
  Country: US (occurrence: US)
  Receive Date: 20181030
  Receipt Date: 20190107
  Transmission Date: 20190417
  Serious: Yes (Other)
  Sender: FDA-Public Use
  Company Number: US-ENDO PHARMACEUTICALS INC-2018-042531

PATIENT
  Age: 62 Year
  Sex: Male
  Weight: 99.5 kg

DRUGS (1)
  1. TESTIM [Suspect]
     Active Substance: TESTOSTERONE
     Indication: ANDROGEN REPLACEMENT THERAPY
     Dosage: UNK UNKNOWN, UNKNOWN
     Route: 065
     Dates: start: 20130129, end: 20130803

REACTIONS (9)
  - Hypothyroidism [Unknown]
  - Prostate cancer [Unknown]
  - Type 2 diabetes mellitus [Unknown]
  - Sleep apnoea syndrome [Unknown]
  - Angioedema [Unknown]
  - Anxiety [Unknown]
  - Osteoarthritis [Unknown]
  - Asthma [Unknown]
  - Temporomandibular joint syndrome [Unknown]

NARRATIVE: CASE EVENT DATE: 20140911
